FAERS Safety Report 12216763 (Version 7)
Quarter: 2016Q2

REPORT INFORMATION
  Report Type: Spontaneous
  Country: US (occurrence: US)
  Receive Date: 20160329
  Receipt Date: 20160525
  Transmission Date: 20160815
  Serious: Yes (Other)
  Sender: FDA-Public Use
  Company Number: US-PFIZER INC-2016130727

PATIENT
  Age: 73 Year
  Sex: Female
  Weight: 63.49 kg

DRUGS (7)
  1. ZANTAC [Concomitant]
     Active Substance: RANITIDINE HYDROCHLORIDE
     Dosage: UNK
  2. SUTENT [Suspect]
     Active Substance: SUNITINIB MALATE
     Indication: RENAL CANCER
     Dosage: 50 MG, CYCLIC (2 WEEKS ON/1 WEEK OFF)
     Dates: start: 20160227, end: 20160501
  3. ATIVAN [Concomitant]
     Active Substance: LORAZEPAM
     Dosage: UNK
  4. AUGMENTIN [Concomitant]
     Active Substance: AMOXICILLIN\CLAVULANATE POTASSIUM
     Indication: UPPER RESPIRATORY TRACT INFECTION
     Dosage: 875 MG -125, 1 DF, 2X/DAY (FOR 5 DAYS)
     Dates: start: 20160309, end: 20160314
  5. SUTENT [Suspect]
     Active Substance: SUNITINIB MALATE
     Indication: RENAL CANCER METASTATIC
     Dosage: 50 MG, CYCLIC (2 WEEKS ON/1 WEEK OFF)
     Route: 048
     Dates: start: 20160227, end: 20160316
  6. DEXAMETHASONE. [Concomitant]
     Active Substance: DEXAMETHASONE
     Dosage: 4 MG, 2X/DAY
     Dates: start: 20160129
  7. ASPIRIN. [Concomitant]
     Active Substance: ASPIRIN
     Dosage: UNK

REACTIONS (14)
  - Pain in extremity [Unknown]
  - Pyrexia [Recovering/Resolving]
  - Chromaturia [Recovering/Resolving]
  - Fatigue [Unknown]
  - Cough [Recovering/Resolving]
  - VIth nerve paralysis [Unknown]
  - Disease progression [Unknown]
  - Nasopharyngitis [Recovering/Resolving]
  - Peripheral swelling [Unknown]
  - Upper respiratory tract infection [Recovering/Resolving]
  - Yellow skin [Recovering/Resolving]
  - Renal cancer metastatic [Unknown]
  - Constipation [Unknown]
  - Skin discolouration [Recovered/Resolved]

NARRATIVE: CASE EVENT DATE: 20160302
